FAERS Safety Report 22341425 (Version 4)
Quarter: 2023Q4

REPORT INFORMATION
  Report Type: Spontaneous
  Country: US (occurrence: US)
  Receive Date: 20230518
  Receipt Date: 20231102
  Transmission Date: 20240110
  Serious: Yes (Death, Hospitalization, Other)
  Sender: FDA-Public Use
  Company Number: US-GILEAD-2023-0628924

PATIENT
  Age: 76 Year
  Sex: Male
  Weight: 92 kg

DRUGS (30)
  1. TECARTUS [Suspect]
     Active Substance: BREXUCABTAGENE AUTOLEUCEL
     Indication: Mantle cell lymphoma
     Dosage: 68 ML
     Route: 042
     Dates: start: 20230315, end: 20230315
  2. ACYCLOVIR [Concomitant]
     Active Substance: ACYCLOVIR
  3. ALLOPURINOL [Concomitant]
     Active Substance: ALLOPURINOL
  4. AMLODIPINE [Concomitant]
     Active Substance: AMLODIPINE BESYLATE
  5. ANAKINRA [Concomitant]
     Active Substance: ANAKINRA
  6. ATOVAQUONE [Concomitant]
     Active Substance: ATOVAQUONE
  7. AZITHROMYCIN [Concomitant]
     Active Substance: AZITHROMYCIN
  8. CEFEPIME [Concomitant]
     Active Substance: CEFEPIME HYDROCHLORIDE
  9. CISATRACURIUM [Concomitant]
     Active Substance: CISATRACURIUM
  10. DEXAMETHASONE [Concomitant]
     Active Substance: DEXAMETHASONE
  11. DEXMEDETOMIDINE [Concomitant]
     Active Substance: DEXMEDETOMIDINE
  12. DOXAZOSIN [Concomitant]
     Active Substance: DOXAZOSIN MESYLATE
  13. ENOXAPARIN [Concomitant]
     Active Substance: ENOXAPARIN
     Indication: Prophylaxis
     Dosage: 40 MG, QD
     Route: 058
     Dates: start: 20230313, end: 20230318
  14. FELODIPINE [Concomitant]
     Active Substance: FELODIPINE
  15. FENTANYL [Concomitant]
     Active Substance: FENTANYL\FENTANYL CITRATE
  16. FUROSEMIDE [Concomitant]
     Active Substance: FUROSEMIDE
  17. HEPARIN [Concomitant]
     Active Substance: HEPARIN SODIUM
     Indication: Prophylaxis
     Dosage: 5000 UNITS SC TID
     Dates: start: 20230412, end: 20230419
  18. HYDRALAZINE [Concomitant]
     Active Substance: HYDRALAZINE HYDROCHLORIDE
  19. KETAMINE [Concomitant]
     Active Substance: KETAMINE
  20. LABETALOL [Concomitant]
     Active Substance: LABETALOL\LABETALOL HYDROCHLORIDE
  21. LEVETIRACETAM [Concomitant]
     Active Substance: LEVETIRACETAM
  22. METHYLPREDNISOLONE [Concomitant]
     Active Substance: METHYLPREDNISOLONE
  23. METOPROLOL [Concomitant]
     Active Substance: METOPROLOL
  24. METRONIDAZOLE [Concomitant]
     Active Substance: METRONIDAZOLE
  25. MIDAZOLAM [Concomitant]
     Active Substance: MIDAZOLAM
  26. NOREPINEPHRINE [Concomitant]
     Active Substance: NOREPINEPHRINE
  27. PANTOPRAZOLE [Concomitant]
     Active Substance: PANTOPRAZOLE
  28. PHENOBARBITAL [Concomitant]
     Active Substance: PHENOBARBITAL
  29. ROCURONIUM [Concomitant]
     Active Substance: ROCURONIUM BROMIDE
  30. TOCILIZUMAB [Concomitant]
     Active Substance: TOCILIZUMAB
     Dosage: UNK
     Dates: start: 20230318, end: 20230319

REACTIONS (5)
  - Unresponsive to stimuli [Unknown]
  - Cardiac arrest [Unknown]
  - Immune effector cell-associated neurotoxicity syndrome [Not Recovered/Not Resolved]
  - Cytokine release syndrome [Recovered/Resolved]
  - Pancreatitis haemorrhagic [Fatal]

NARRATIVE: CASE EVENT DATE: 20230317
